FAERS Safety Report 23998272 (Version 2)
Quarter: 2024Q3

REPORT INFORMATION
  Report Type: Report from Study
  Country: US (occurrence: US)
  Receive Date: 20240621
  Receipt Date: 20240703
  Transmission Date: 20241017
  Serious: Yes (Other)
  Sender: ROCHE
  Company Number: US-ROCHE-10000002712

PATIENT
  Age: 77 Year
  Sex: Male

DRUGS (1)
  1. ALECENSA [Suspect]
     Active Substance: ALECTINIB HYDROCHLORIDE
     Indication: Lung neoplasm malignant
     Dosage: TAKE 2 CAPSULE(S) BY MOUTH TWICE A DAY WITH FOOD
     Route: 048

REACTIONS (1)
  - Metastases to central nervous system [Unknown]
